FAERS Safety Report 6870096-6 (Version None)
Quarter: 2010Q3

REPORT INFORMATION
  Report Type: 
  Country: None (occurrence: None)
  Receive Date: 20100722
  Receipt Date: 20080922
  Transmission Date: 20110219
  Serious: No
  Sender: FDA-Public Use
  Company Number: US-PFIZER INC-2008074490

PATIENT
  Sex: Female
  Weight: 59.1 kg

DRUGS (8)
  1. CHANTIX [Suspect]
     Indication: SMOKING CESSATION THERAPY
     Route: 048
     Dates: start: 20070201
  2. CHANTIX [Suspect]
     Indication: NICOTINE DEPENDENCE
  3. TIKOSYN [Concomitant]
  4. METOPROLOL [Concomitant]
  5. NEURONTIN [Concomitant]
  6. COZAAR [Concomitant]
  7. VICODIN [Concomitant]
  8. DICYCLOMINE [Concomitant]

REACTIONS (6)
  - ABNORMAL DREAMS [None]
  - CONFUSIONAL STATE [None]
  - DAYDREAMING [None]
  - DEREALISATION [None]
  - EMOTIONAL DISORDER [None]
  - NERVOUSNESS [None]
